FAERS Safety Report 7759741-0 (Version None)
Quarter: 2011Q3

REPORT INFORMATION
  Report Type: 
  Country: None (occurrence: None)
  Receive Date: 20110919
  Receipt Date: 20110907
  Transmission Date: 20111222
  Serious: Yes (Other)
  Sender: FDA-Public Use
  Company Number: US-UCBSA-040937

PATIENT
  Sex: Female
  Weight: 107.5 kg

DRUGS (5)
  1. CERTOLIZUMAB PEGOL [Suspect]
     Indication: RHEUMATOID ARTHRITIS
     Route: 058
     Dates: start: 20110712, end: 20110829
  2. SULFASALAZINE [Concomitant]
     Indication: ARTHRITIS
     Route: 048
     Dates: start: 20110222
  3. PERCOCET [Concomitant]
     Indication: PROCEDURAL PAIN
     Dosage: DOSE: 5/325 MG PRN
     Route: 048
     Dates: start: 20110810, end: 20110812
  4. ETODOLAC [Concomitant]
     Indication: ARTHRITIS
     Route: 048
     Dates: start: 20110101
  5. TYLENOL-500 [Concomitant]
     Indication: ARTHRALGIA
     Route: 048
     Dates: start: 20110501

REACTIONS (1)
  - PREGNANCY ON CONTRACEPTIVE [None]
